FAERS Safety Report 7645295-6 (Version None)
Quarter: 2011Q3

REPORT INFORMATION
  Report Type: 
  Country: None (occurrence: None)
  Receive Date: 20110729
  Receipt Date: 20110714
  Transmission Date: 20111222
  Serious: Yes (Life-Threatening, Hospitalization)
  Sender: FDA-Public Use
  Company Number: GB-WATSON-2011-11012

PATIENT
  Age: 57 Year
  Sex: Male

DRUGS (10)
  1. PREDNISOLONE [Concomitant]
     Indication: RASH
     Dosage: UNK
     Route: 065
  2. TEICOPLANIN [Suspect]
     Indication: PROPHYLAXIS
     Dosage: 400 MG, UNKNOWN
     Route: 042
     Dates: start: 20110620
  3. LANSOPRAZOLE [Concomitant]
     Indication: PRODUCT USED FOR UNKNOWN INDICATION
     Dosage: UNK
     Route: 065
  4. CHLORHEXIDINE GLUCONATE [Suspect]
     Indication: PRODUCT USED FOR UNKNOWN INDICATION
     Dosage: UNK
     Route: 061
     Dates: start: 20110620
  5. GENTAMICIN [Suspect]
     Indication: PROPHYLAXIS
     Dosage: 120 MG, UNKNOWN
     Route: 042
  6. LEVOBUPIVACAINE [Suspect]
     Indication: NERVE BLOCK
     Dosage: 150 MG, UNKNOWN
     Route: 065
     Dates: start: 20110620
  7. PROPOFOL [Suspect]
     Indication: PRODUCT USED FOR UNKNOWN INDICATION
     Dosage: 200 MG, UNKNOWN
     Route: 042
     Dates: start: 20110620
  8. VENTOLIN [Concomitant]
     Indication: PRODUCT USED FOR UNKNOWN INDICATION
     Dosage: UNK
     Route: 065
  9. DEXAMETHASONE [Suspect]
     Indication: PROPHYLAXIS
     Dosage: 8 MG, UNKNOWN
     Route: 042
  10. FENTANYL [Suspect]
     Indication: PRODUCT USED FOR UNKNOWN INDICATION
     Dosage: 1 MG, UNKNOWN
     Route: 042
     Dates: start: 20110620

REACTIONS (1)
  - ANAPHYLACTIC REACTION [None]
